FAERS Safety Report 25013243 (Version 1)
Quarter: 2025Q1

REPORT INFORMATION
  Report Type: Spontaneous
  Country: FR (occurrence: FR)
  Receive Date: 20250226
  Receipt Date: 20250226
  Transmission Date: 20250408
  Serious: Yes (Other)
  Sender: AUROBINDO
  Company Number: FR-AFSSAPS-AM2025000038

PATIENT
  Age: 35 Year
  Sex: Female
  Weight: 51 kg

DRUGS (9)
  1. FOLIC ACID [Suspect]
     Active Substance: FOLIC ACID
     Indication: Vitamin supplementation
     Dosage: 0.4 MILLIGRAM, ONCE A DAY
     Route: 064
  2. PANTOPRAZOLE [Suspect]
     Active Substance: PANTOPRAZOLE
     Indication: Product used for unknown indication
     Dosage: 40 MILLIGRAM, ONCE A DAY
     Route: 064
  3. PANCRELIPASE [Suspect]
     Active Substance: PANCRELIPASE
     Indication: Product used for unknown indication
     Route: 064
  4. CALCIUM CARBONATE\CHOLECALCIFEROL [Suspect]
     Active Substance: CALCIUM CARBONATE\CHOLECALCIFEROL
     Indication: Mineral supplementation
     Dosage: 1 DOSAGE FORM, ONCE A DAY
     Route: 064
  5. ELEXACAFTOR\IVACAFTOR\TEZACAFTOR [Suspect]
     Active Substance: ELEXACAFTOR\IVACAFTOR\TEZACAFTOR
     Indication: Cystic fibrosis carrier
     Dosage: 2 DOSAGE FORM, ONCE A DAY
     Route: 064
     Dates: start: 20240915
  6. KALYDECO [Suspect]
     Active Substance: IVACAFTOR
     Indication: Cystic fibrosis carrier
     Dosage: 150 MILLIGRAM, ONCE A DAY
     Route: 064
     Dates: start: 20240915
  7. POTASSIUM CHLORATE [Suspect]
     Active Substance: POTASSIUM CHLORATE
     Indication: Hypokalaemia
     Dosage: 1200 MILLIGRAM, ONCE A DAY
     Route: 064
  8. TINZAPARIN SODIUM [Suspect]
     Active Substance: TINZAPARIN SODIUM
     Indication: Thrombosis prophylaxis
     Dosage: 12000 INTERNATIONAL UNIT, ONCE A DAY
     Route: 064
  9. URSODIOL [Suspect]
     Active Substance: URSODIOL
     Indication: Hepatobiliary disease
     Dosage: 1000 MILLIGRAM, ONCE A DAY
     Route: 064

REACTIONS (2)
  - Abortion spontaneous [Recovered/Resolved with Sequelae]
  - Maternal exposure during pregnancy [Recovered/Resolved with Sequelae]

NARRATIVE: CASE EVENT DATE: 20240920
